FAERS Safety Report 10951654 (Version 4)
Quarter: 2015Q3

REPORT INFORMATION
  Report Type: Report from Study
  Country: JP (occurrence: JP)
  Receive Date: 20150324
  Receipt Date: 20150810
  Transmission Date: 20151125
  Serious: Yes (Death, Other)
  Sender: FDA-Public Use
  Company Number: JP-TAKEDA-2015TJP003761

PATIENT
  Age: 86 Year
  Sex: Male
  Weight: 46.8 kg

DRUGS (7)
  1. GLUBES [Concomitant]
     Active Substance: MITIGLINIDE CALCIUM HYDRATE\VOGLIBOSE
     Indication: TYPE 2 DIABETES MELLITUS
     Dosage: 3 DF, UNK
     Route: 048
     Dates: start: 20130603, end: 20130627
  2. ALOGLIPTIN [Suspect]
     Active Substance: ALOGLIPTIN
     Indication: TYPE 2 DIABETES MELLITUS
     Dosage: 12.5 MG, QD
     Route: 048
     Dates: start: 20120625, end: 20130808
  3. FASTIC [Concomitant]
     Active Substance: NATEGLINIDE
     Indication: TYPE 2 DIABETES MELLITUS
     Dosage: 270 MG, UNK
     Route: 048
     Dates: end: 20120421
  4. FASTIC [Concomitant]
     Active Substance: NATEGLINIDE
     Dosage: 270 MG, UNK
     Route: 048
     Dates: start: 20130628, end: 20130908
  5. ALOGLIPTIN [Suspect]
     Active Substance: ALOGLIPTIN
     Dosage: 6.25 MG, QD
     Route: 048
     Dates: start: 20130809, end: 20130908
  6. REZALTAS [Concomitant]
     Active Substance: AZELNIDIPINE\OLMESARTAN MEDOXOMIL
     Dosage: UNK
     Route: 048
  7. ARICEPT [Concomitant]
     Active Substance: DONEPEZIL HYDROCHLORIDE
     Dosage: UNK
     Route: 048

REACTIONS (2)
  - Death [Fatal]
  - Adult T-cell lymphoma/leukaemia [Unknown]

NARRATIVE: CASE EVENT DATE: 20130610
